FAERS Safety Report 10946548 (Version 1)
Quarter: 2015Q1

REPORT INFORMATION
  Report Type: Spontaneous
  Country: US (occurrence: US)
  Receive Date: 20150323
  Receipt Date: 20150323
  Transmission Date: 20150721
  Serious: Yes (Other)
  Sender: FDA-Public Use
  Company Number: US-TEVA-548047USA

PATIENT
  Sex: Female

DRUGS (1)
  1. COPAXONE [Suspect]
     Active Substance: GLATIRAMER ACETATE
     Indication: MULTIPLE SCLEROSIS
     Dates: start: 2014, end: 20150306

REACTIONS (7)
  - Vertigo [Unknown]
  - Multiple sclerosis relapse [Unknown]
  - Vision blurred [Unknown]
  - Bladder disorder [Unknown]
  - Visual impairment [Unknown]
  - Gait disturbance [Unknown]
  - Coordination abnormal [Unknown]

NARRATIVE: CASE EVENT DATE: 2015
